FAERS Safety Report 25020092 (Version 2)
Quarter: 2025Q2

REPORT INFORMATION
  Report Type: Report from Study
  Country: JP (occurrence: JP)
  Receive Date: 20250227
  Receipt Date: 20250514
  Transmission Date: 20250717
  Serious: Yes (Death)
  Sender: SHIONOGI
  Company Number: JP-shionogi-202500002218

PATIENT
  Age: 75 Year
  Sex: Male
  Weight: 37.2 kg

DRUGS (14)
  1. CEFIDEROCOL [Suspect]
     Active Substance: CEFIDEROCOL
     Indication: Pneumonia bacterial
     Route: 041
     Dates: start: 20240802, end: 20240815
  2. CEFIDEROCOL [Suspect]
     Active Substance: CEFIDEROCOL
     Indication: Pleurisy
  3. LINEZOLID [Concomitant]
     Active Substance: LINEZOLID
     Indication: Pneumonia bacterial
     Route: 065
     Dates: start: 20240718, end: 20240728
  4. LINEZOLID [Concomitant]
     Active Substance: LINEZOLID
     Indication: Pleurisy
  5. LEVOFLOXACIN HEMIHYDRATE [Concomitant]
     Active Substance: LEVOFLOXACIN
     Indication: Pneumonia bacterial
     Route: 048
     Dates: start: 20240719, end: 20240801
  6. LEVOFLOXACIN HEMIHYDRATE [Concomitant]
     Active Substance: LEVOFLOXACIN
     Indication: Pleurisy
     Route: 048
     Dates: start: 20240802, end: 20240814
  7. LEVOFLOXACIN HEMIHYDRATE [Concomitant]
     Active Substance: LEVOFLOXACIN
     Route: 048
     Dates: start: 20240718, end: 20240718
  8. SODIUM FERROUS CITRATE [Concomitant]
     Active Substance: SODIUM FERROUS CITRATE
     Indication: Product used for unknown indication
     Route: 048
     Dates: end: 20240823
  9. ERYTHROCIN [ERYTHROMYCIN STEARATE] [Concomitant]
     Indication: Product used for unknown indication
     Route: 048
     Dates: end: 20240823
  10. CARBOCYSTEINE [Concomitant]
     Active Substance: CARBOCYSTEINE
     Indication: Product used for unknown indication
     Route: 048
     Dates: end: 20240823
  11. OLOPATADINE HYDROCHLORIDE [Concomitant]
     Active Substance: OLOPATADINE HYDROCHLORIDE
     Indication: Product used for unknown indication
     Route: 048
     Dates: end: 20240823
  12. VONOPRAZAN FUMARATE [Concomitant]
     Active Substance: VONOPRAZAN FUMARATE
     Indication: Product used for unknown indication
     Route: 048
     Dates: end: 20240823
  13. MYCOSPOR [BIFONAZOLE] [Concomitant]
     Indication: Skin candida
     Route: 065
     Dates: start: 20240808, end: 20240823
  14. ANORO ELLIPTA [Concomitant]
     Active Substance: UMECLIDINIUM BROMIDE\VILANTEROL TRIFENATATE
     Indication: Product used for unknown indication
     Route: 055
     Dates: end: 20240823

REACTIONS (2)
  - Pneumonia bacterial [Fatal]
  - Skin candida [Unknown]

NARRATIVE: CASE EVENT DATE: 20240808
